FAERS Safety Report 6992403-6 (Version None)
Quarter: 2010Q3

REPORT INFORMATION
  Report Type: 
  Country: None (occurrence: None)
  Receive Date: 20100915
  Receipt Date: 20100825
  Transmission Date: 20110219
  Serious: Yes (Death)
  Sender: FDA-Public Use
  Company Number: GER/UKI/10/0015578

PATIENT
  Age: 29 Year
  Sex: Male

DRUGS (1)
  1. CITALOPRAM HYDROBROMIDE [Suspect]
     Indication: PRODUCT USED FOR UNKNOWN INDICATION

REACTIONS (4)
  - ASPIRATION [None]
  - CHOKING [None]
  - DRUG TOXICITY [None]
  - GASTROINTESTINAL HYPOMOTILITY [None]
